FAERS Safety Report 8664939 (Version 2)
Quarter: 2013Q2

REPORT INFORMATION
  Report Type: Spontaneous
  Country: JP (occurrence: JP)
  Receive Date: 20120713
  Receipt Date: 20130503
  Transmission Date: 20140414
  Serious: Yes (Death)
  Sender: FDA-Public Use
  Company Number: JP-GILEAD-2012-0057324

PATIENT
  Sex: Male

DRUGS (2)
  1. AMBRISENTAN [Suspect]
     Indication: PULMONARY HYPERTENSION
     Dosage: 7.5MG PER DAY
     Route: 048
     Dates: start: 20110411
  2. AMBRISENTAN [Suspect]
     Dosage: 5MG PER DAY
     Route: 048

REACTIONS (2)
  - Oedema [Fatal]
  - General physical health deterioration [Fatal]
